FAERS Safety Report 17591252 (Version 3)
Quarter: 2020Q2

REPORT INFORMATION
  Report Type: Spontaneous
  Country: US (occurrence: US)
  Receive Date: 20200327
  Receipt Date: 20200408
  Transmission Date: 20200713
  Serious: Yes (Other)
  Sender: FDA-Public Use
  Company Number: US-PFIZER INC-2019413324

PATIENT
  Age: 84 Year
  Sex: Female
  Weight: 88.9 kg

DRUGS (3)
  1. LYRICA [Suspect]
     Active Substance: PREGABALIN
     Indication: LUMBAR RADICULOPATHY
     Dosage: 75 MG, 3X/DAY
     Route: 048
  2. LYRICA [Suspect]
     Active Substance: PREGABALIN
     Indication: FIBROMYALGIA
     Dosage: 75 MG, 2X/DAY
     Dates: start: 202001
  3. LYRICA [Suspect]
     Active Substance: PREGABALIN
     Dosage: 75 MG, 1X/DAY

REACTIONS (10)
  - Memory impairment [Unknown]
  - Sensitivity to weather change [Unknown]
  - Dyspnoea [Unknown]
  - Malaise [Unknown]
  - Pneumonia [Not Recovered/Not Resolved]
  - Sputum retention [Unknown]
  - Sinusitis [Not Recovered/Not Resolved]
  - Intentional product misuse [Unknown]
  - Dysstasia [Unknown]
  - Pain [Unknown]

NARRATIVE: CASE EVENT DATE: 202001
